FAERS Safety Report 22389719 (Version 1)
Quarter: 2023Q2

REPORT INFORMATION
  Report Type: Spontaneous
  Country: US (occurrence: None)
  Receive Date: 20230529
  Receipt Date: 20230529
  Transmission Date: 20230722
  Serious: Yes (Life-Threatening, Hospitalization, Disabling, Other)
  Sender: FDA-Public Use
  Company Number: None

PATIENT
  Age: 34 Year
  Sex: Female
  Weight: 74.84 kg

DRUGS (3)
  1. BACLOFEN [Suspect]
     Active Substance: BACLOFEN
  2. Essure birth devise [Concomitant]
  3. TYNOL [Concomitant]

REACTIONS (5)
  - Tremor [None]
  - Dyspnoea [None]
  - Dyskinesia [None]
  - Therapeutic product ineffective [None]
  - Device defective [None]

NARRATIVE: CASE EVENT DATE: 20230526
